FAERS Safety Report 25676618 (Version 3)
Quarter: 2025Q4

REPORT INFORMATION
  Report Type: Report from Study
  Country: PH (occurrence: PH)
  Receive Date: 20250813
  Receipt Date: 20251216
  Transmission Date: 20260117
  Serious: Yes (Hospitalization)
  Sender: OTSUKA
  Company Number: PH-MMM-Otsuka-GFQD9U2W

PATIENT
  Sex: Female

DRUGS (2)
  1. TOLVAPTAN [Suspect]
     Active Substance: TOLVAPTAN
     Indication: Chronic kidney disease
     Dosage: 0.5 DF, QD (15 MG 1/2 TABLET ONCE A DAY)
     Route: 061
  2. TOLVAPTAN [Suspect]
     Active Substance: TOLVAPTAN
     Dosage: 0.5 DF, TIW [15 MG HALF TABLET EVERY MONDAY, WEDNESDAY AND FRIDAY (MWF)]
     Route: 065

REACTIONS (2)
  - Fall [Unknown]
  - Product use in unapproved indication [Unknown]
